FAERS Safety Report 21446610 (Version 1)
Quarter: 2022Q4

REPORT INFORMATION
  Report Type: Spontaneous
  Country: US (occurrence: None)
  Receive Date: 20221011
  Receipt Date: 20221011
  Transmission Date: 20230113
  Serious: Yes (Hospitalization)
  Sender: FDA-Public Use
  Company Number: None

PATIENT
  Age: 66 Year
  Sex: Male
  Weight: 117 kg

DRUGS (1)
  1. RIVAROXABAN [Suspect]
     Active Substance: RIVAROXABAN
     Indication: Deep vein thrombosis
     Dosage: 10 MG EVERY DAY PO?
     Route: 048
     Dates: start: 20190228, end: 20220703

REACTIONS (2)
  - Gastric haemorrhage [None]
  - Red blood cell transfusion [None]

NARRATIVE: CASE EVENT DATE: 20220703
